FAERS Safety Report 13599500 (Version 1)
Quarter: 2017Q2

REPORT INFORMATION
  Report Type: Spontaneous
  Country: HR (occurrence: HR)
  Receive Date: 20170531
  Receipt Date: 20170531
  Transmission Date: 20170830
  Serious: Yes (Hospitalization)
  Sender: FDA-Public Use
  Company Number: PHHY2017HR079609

PATIENT
  Age: 49 Year
  Sex: Male

DRUGS (1)
  1. VOLTARENE [Suspect]
     Active Substance: DICLOFENAC SODIUM
     Indication: CAUDA EQUINA SYNDROME
     Dosage: 250 MG, UNK
     Route: 048
     Dates: start: 20090320, end: 20090420

REACTIONS (7)
  - Duodenal stenosis [Unknown]
  - Erectile dysfunction [Unknown]
  - Duodenal ulcer [Unknown]
  - Haemorrhagic anaemia [Unknown]
  - Vomiting [Unknown]
  - Melaena [Unknown]
  - Abdominal pain [Unknown]

NARRATIVE: CASE EVENT DATE: 20090410
